FAERS Safety Report 6688261-X (Version None)
Quarter: 2010Q2

REPORT INFORMATION
  Report Type: 
  Country: None (occurrence: None)
  Receive Date: 20100420
  Receipt Date: 20100414
  Transmission Date: 20101027
  Serious: Yes (Death)
  Sender: FDA-Public Use
  Company Number: JP-ROCHE-587198

PATIENT
  Sex: Female
  Weight: 45 kg

DRUGS (5)
  1. TOCILIZUMAB [Suspect]
     Indication: RHEUMATOID ARTHRITIS
     Route: 041
     Dates: start: 20080625, end: 20080625
  2. TOCILIZUMAB [Suspect]
     Route: 041
     Dates: start: 20080723, end: 20080723
  3. METHOTREXATE [Concomitant]
     Route: 048
     Dates: start: 20070618
  4. PREDONINE [Concomitant]
     Route: 048
  5. CELECOXIB [Concomitant]
     Dosage: DRUG NAME REPORTED: CELECOX.
     Route: 048
     Dates: start: 20080523

REACTIONS (1)
  - MYOCARDIAL INFARCTION [None]
